FAERS Safety Report 7194460-3 (Version None)
Quarter: 2010Q4

REPORT INFORMATION
  Report Type: 
  Country: None (occurrence: None)
  Receive Date: 20101223
  Receipt Date: 20101216
  Transmission Date: 20110411
  Serious: Yes (Other)
  Sender: FDA-Public Use
  Company Number: ES-SANOFI-AVENTIS-2010SA075944

PATIENT
  Age: 87 Year
  Sex: Female

DRUGS (1)
  1. STILNOX [Suspect]
     Indication: INSOMNIA
     Route: 048
     Dates: start: 20100604, end: 20100625

REACTIONS (2)
  - FALL [None]
  - HEAD INJURY [None]
